FAERS Safety Report 25266489 (Version 1)
Quarter: 2025Q2

REPORT INFORMATION
  Report Type: Spontaneous
  Country: US (occurrence: US)
  Receive Date: 20250505
  Receipt Date: 20250505
  Transmission Date: 20250717
  Serious: Yes (Death, Hospitalization, Other)
  Sender: GLAXOSMITHKLINE
  Company Number: US-GSK-US2025051748

PATIENT

DRUGS (1)
  1. TRELEGY ELLIPTA [Suspect]
     Active Substance: FLUTICASONE FUROATE\UMECLIDINIUM BROMIDE\VILANTEROL TRIFENATATE
     Indication: Product used for unknown indication
     Dosage: 200 MG, QD
     Dates: end: 20250428

REACTIONS (7)
  - Chronic obstructive pulmonary disease [Fatal]
  - Pulmonary oedema [Fatal]
  - Hospitalisation [Unknown]
  - Renal cancer [Unknown]
  - Lung neoplasm malignant [Unknown]
  - Hepatic cancer [Unknown]
  - Bone cancer [Unknown]
